FAERS Safety Report 4444659-1 (Version None)
Quarter: 2004Q3

REPORT INFORMATION
  Report Type: 
  Country: None (occurrence: None)
  Receive Date: 20040907
  Receipt Date: 20040816
  Transmission Date: 20050211
  Serious: Yes (Hospitalization)
  Sender: FDA-Public Use
  Company Number: SGB1-2004-00295

PATIENT
  Age: 45 Year
  Sex: Male

DRUGS (1)
  1. AGRYLIN [Suspect]
     Indication: ESSENTIAL THROMBOCYTHAEMIA
     Dosage: 2 MG, 2X/DAY: BID, ORAL
     Route: 048
     Dates: start: 19990101, end: 20040719

REACTIONS (3)
  - HYPERSENSITIVITY [None]
  - PNEUMONITIS [None]
  - STREPTOCOCCAL BACTERAEMIA [None]
